FAERS Safety Report 23177925 (Version 2)
Quarter: 2023Q4

REPORT INFORMATION
  Report Type: Report from Study
  Country: CA (occurrence: CA)
  Receive Date: 20231113
  Receipt Date: 20231219
  Transmission Date: 20240110
  Serious: Yes (Death, Disabling)
  Sender: FDA-Public Use
  Company Number: CA-002147023-NVSC2021CA189840

PATIENT
  Age: 67 Year
  Sex: Male
  Weight: 83.9 kg

DRUGS (2)
  1. VOTRIENT [Suspect]
     Active Substance: PAZOPANIB HYDROCHLORIDE
     Indication: Metastatic neoplasm
     Dosage: 800 MG
     Route: 048
     Dates: start: 20210329, end: 20210525
  2. VOTRIENT [Suspect]
     Active Substance: PAZOPANIB HYDROCHLORIDE
     Dosage: 600 MG
     Route: 065
     Dates: start: 20210601, end: 202206

REACTIONS (5)
  - Malignant neoplasm progression [Fatal]
  - Metastatic neoplasm [Fatal]
  - Asthenia [Recovered/Resolved]
  - Nausea [Recovered/Resolved]
  - Toxicity to various agents [Unknown]

NARRATIVE: CASE EVENT DATE: 20210527
